FAERS Safety Report 10597822 (Version 1)
Quarter: 2014Q4

REPORT INFORMATION
  Report Type: Spontaneous
  Country: IT (occurrence: IT)
  Receive Date: 20141121
  Receipt Date: 20141121
  Transmission Date: 20150529
  Serious: Yes (Other)
  Sender: FDA-Public Use
  Company Number: IT-JNJFOC-20141016243

PATIENT

DRUGS (1)
  1. INFLIXIMAB, RECOMBINANT [Suspect]
     Active Substance: INFLIXIMAB
     Indication: COLITIS ULCERATIVE
     Dosage: DOSING FREQUENCY: 0,2, 6 WEEKS
     Route: 042

REACTIONS (5)
  - Opportunistic infection [Unknown]
  - Adverse drug reaction [Unknown]
  - Infusion related reaction [Unknown]
  - Headache [Unknown]
  - Colectomy [Unknown]
